FAERS Safety Report 7491520-4 (Version None)
Quarter: 2011Q2

REPORT INFORMATION
  Report Type: 
  Country: None (occurrence: None)
  Receive Date: 20110519
  Receipt Date: 20110510
  Transmission Date: 20111010
  Serious: Yes (Hospitalization)
  Sender: FDA-Public Use
  Company Number: US-ASTRAZENECA-2011SE21415

PATIENT
  Age: 62 Year
  Sex: Female
  Weight: 75.4 kg

DRUGS (11)
  1. SYMBICORT [Suspect]
     Indication: CHRONIC OBSTRUCTIVE PULMONARY DISEASE
     Dosage: 160/4.5 UG, 2 PUFFS TWICE DAILY
     Route: 055
     Dates: start: 20110228
  2. BIMATOPROST [Concomitant]
     Dosage: 1 DROP INTO AFFECTED EYE EVERY EVENING
     Route: 047
  3. SYMBICORT [Suspect]
     Dosage: 160/4.5 UG, 1 PUFFS TWICE DAILY
     Route: 055
     Dates: start: 20110302
  4. NICORETTE [Concomitant]
     Indication: TOBACCO USER
     Dosage: 1 PIECE FOR 30 MINUTES AS NEEDED, 24 TIMES A DAY
  5. TIMOLOL MALEATE [Concomitant]
     Dosage: 1 DROP INTO THE AFFECTED EYE ONCE DAILY
     Route: 047
  6. LEXAPRO [Concomitant]
     Indication: DEPRESSION
     Route: 048
  7. COMBIVENT [Concomitant]
     Indication: CHRONIC OBSTRUCTIVE PULMONARY DISEASE
     Dosage: 103-18 MCG/ACT, 1-2 PUFFS EVERY FOUR HOURS AS DIRECTED
     Route: 055
  8. DUONEB [Concomitant]
     Indication: CHRONIC OBSTRUCTIVE PULMONARY DISEASE
     Dosage: 0.5-2.5 (3) MG/3ML, 3ML SIX TIMES A DAY
     Route: 055
  9. PROAIR HFA [Concomitant]
     Indication: CHRONIC OBSTRUCTIVE PULMONARY DISEASE
     Dosage: 108 (90 BASE) MCG/ACT, 2 PUFFS EVERY 4 HOURS
     Route: 055
  10. SPIRIVA [Concomitant]
     Indication: CHRONIC OBSTRUCTIVE PULMONARY DISEASE
  11. ASPIRIN [Concomitant]
     Indication: HYPERTENSION
     Route: 048

REACTIONS (1)
  - PNEUMONIA [None]
